FAERS Safety Report 8458897 (Version 4)
Quarter: 2012Q4

REPORT INFORMATION
  Report Type: 
  Country: FR (occurrence: FR)
  Receive Date: 20120314
  Receipt Date: 20121205
  Transmission Date: 20130627
  Serious: Yes (Hospitalization)
  Sender: FDA-Public Use
  Company Number: FR-ABBOTT-12P-056-0912177-00

PATIENT
  Age: 53 Year
  Sex: Female

DRUGS (9)
  1. MONOZELCAR [Suspect]
     Indication: UPPER RESPIRATORY TRACT INFECTION
     Route: 048
     Dates: start: 20111024, end: 20111029
  2. MONOZELCAR [Suspect]
     Indication: EAR INFECTION
  3. COLPOTROPHINE [Suspect]
     Indication: PRODUCT USED FOR UNKNOWN INDICATION
     Dosage: Once
     Route: 067
     Dates: start: 20111021, end: 20111021
  4. COLPOTROPHINE [Suspect]
     Dosage: Once
     Route: 067
     Dates: start: 20111025, end: 20111025
  5. COLPOTROPHINE [Suspect]
     Dosage: once
     Route: 067
     Dates: start: 20111031, end: 20111031
  6. FUNGIZONE [Suspect]
     Indication: PRODUCT USED FOR UNKNOWN INDICATION
     Dosage: Two coffee spoons in morning + afternoon
     Dates: start: 20111024, end: 20111029
  7. CELEBREX [Suspect]
     Indication: PRODUCT USED FOR UNKNOWN INDICATION
     Dosage: 1 dosage form in morning and mid day
     Dates: start: 20111024, end: 20111026
  8. PARACETAMOL [Concomitant]
     Indication: PAIN
  9. TAHOR [Concomitant]
     Indication: HYPERCHOLESTEROLAEMIA

REACTIONS (1)
  - Anaphylactic shock [Recovered/Resolved]
